FAERS Safety Report 22598138 (Version 2)
Quarter: 2024Q2

REPORT INFORMATION
  Report Type: Spontaneous
  Country: US (occurrence: None)
  Receive Date: 20230614
  Receipt Date: 20240613
  Transmission Date: 20240716
  Serious: No
  Sender: FDA-Public Use
  Company Number: US-MDD US Operations-MDD202202-000162

PATIENT
  Age: 68 Year
  Sex: Female

DRUGS (4)
  1. APOKYN [Suspect]
     Active Substance: APOMORPHINE HYDROCHLORIDE
     Indication: Parkinson^s disease
     Route: 058
     Dates: start: 2021
  2. APOKYN [Suspect]
     Active Substance: APOMORPHINE HYDROCHLORIDE
     Dosage: UPTO 2.5ML
     Route: 058
     Dates: start: 20220131
  3. APOKYN [Suspect]
     Active Substance: APOMORPHINE HYDROCHLORIDE
     Dosage: NOT PROVIDED
     Route: 058
     Dates: start: 202112
  4. XANAX [Concomitant]
     Active Substance: ALPRAZOLAM
     Indication: Anxiety
     Dosage: NOT PROVIDED

REACTIONS (12)
  - Tremor [Unknown]
  - On and off phenomenon [Recovering/Resolving]
  - Tooth loss [Unknown]
  - Bursitis [Unknown]
  - Feeling abnormal [Unknown]
  - Crying [Unknown]
  - Head discomfort [Unknown]
  - Bruxism [Unknown]
  - Skin irritation [Unknown]
  - Rash [Unknown]
  - Off label use [Unknown]
  - Overdose [Unknown]

NARRATIVE: CASE EVENT DATE: 20220131
